FAERS Safety Report 5716567-7 (Version None)
Quarter: 2008Q2

REPORT INFORMATION
  Report Type: 
  Country: None (occurrence: None)
  Receive Date: 20080424
  Receipt Date: 20080417
  Transmission Date: 20081010
  Serious: Yes (Death)
  Sender: FDA-Public Use
  Company Number: US-BAXTER-2008BH003742

PATIENT
  Age: 78 Year
  Sex: Female

DRUGS (1)
  1. HEPARIN SODIUM [Suspect]
     Indication: THROMBOSIS PROPHYLAXIS
     Dosage: DOSE UNIT:UNKNOWN
     Route: 010
     Dates: start: 20071101

REACTIONS (5)
  - DEATH [None]
  - MALAISE [None]
  - NAUSEA [None]
  - TREMOR [None]
  - UNRESPONSIVE TO STIMULI [None]
